FAERS Safety Report 8923619 (Version 2)
Quarter: 2013Q1

REPORT INFORMATION
  Report Type: Spontaneous
  Country: ES (occurrence: None)
  Receive Date: 20121115
  Receipt Date: 20121120
  Transmission Date: 20140127
  Serious: Yes (Other)
  Sender: FDA-Public Use
  Company Number: 2012AP003900

PATIENT
  Age: 52 Year
  Sex: Female

DRUGS (8)
  1. RISPERIDONE (RISPERIDONE) [Suspect]
     Indication: MAJOR DEPRESSION
  2. RISPERIDONE (RISPERIDONE) [Suspect]
     Indication: OFF LABEL USE
  3. FLUOXETINE [Suspect]
     Indication: MAJOR DEPRESSION
  4. BIPERIDEN (BIPERIDEN) [Concomitant]
  5. CLONAZEPAM (CLONAZEPAM) [Concomitant]
  6. PROPRANOLOL (PROPRANOLOL) [Concomitant]
  7. TETRABENAZINE (TETRABENAZINE) [Concomitant]
  8. TRAZODONE (TRAZODONE) [Concomitant]

REACTIONS (10)
  - Akathisia [None]
  - Depression [None]
  - Suicidal ideation [None]
  - Off label use [None]
  - No therapeutic response [None]
  - Somnolence [None]
  - Fatigue [None]
  - Restless legs syndrome [None]
  - Drug resistance [None]
  - Anxiety [None]
